FAERS Safety Report 7958405-8 (Version None)
Quarter: 2011Q4

REPORT INFORMATION
  Report Type: 
  Country: None (occurrence: None)
  Receive Date: 20111205
  Receipt Date: 20111125
  Transmission Date: 20120403
  Serious: Yes (Other)
  Sender: FDA-Public Use
  Company Number: GB-MERCK-1111GBR00126

PATIENT
  Sex: Male

DRUGS (1)
  1. CRIXIVAN [Suspect]
     Route: 065
     Dates: start: 19980101, end: 19980101

REACTIONS (2)
  - PAIN [None]
  - HYDRONEPHROSIS [None]
